FAERS Safety Report 4426242-7 (Version None)
Quarter: 2004Q3

REPORT INFORMATION
  Report Type: 
  Country: None (occurrence: None)
  Receive Date: 20040812
  Receipt Date: 20040802
  Transmission Date: 20050211
  Serious: Yes (Other)
  Sender: FDA-Public Use
  Company Number: A-CH2004-07024

PATIENT
  Age: 21 Year
  Sex: Male
  Weight: 81 kg

DRUGS (7)
  1. TRACLEER [Suspect]
     Indication: PULMONARY HYPERTENSION
     Dosage: 62.5 MG, BID, ORAL
     Route: 048
     Dates: start: 20040501, end: 20040605
  2. SANDOGLOBULIN [Concomitant]
  3. MARCUMAR [Concomitant]
  4. SERETIDE (GLUTICASONE PROPIONATE, SALMETEROL) [Concomitant]
  5. BERAPROST (BERAPROST) [Concomitant]
  6. ATROVENT [Concomitant]
  7. LOMUDAL NASAL (CROMOGLICATE SODIUM) [Concomitant]

REACTIONS (3)
  - ALANINE AMINOTRANSFERASE INCREASED [None]
  - ASPARTATE AMINOTRANSFERASE INCREASED [None]
  - LIVER FUNCTION TEST ABNORMAL [None]
